FAERS Safety Report 7337757-6 (Version None)
Quarter: 2011Q1

REPORT INFORMATION
  Report Type: 
  Country: None (occurrence: None)
  Receive Date: 20110210
  Receipt Date: 20110112
  Transmission Date: 20110831
  Serious: Yes (Hospitalization)
  Sender: FDA-Public Use
  Company Number: 1000018141

PATIENT
  Age: 70 Year
  Sex: Female

DRUGS (2)
  1. SAVELLA [Suspect]
  2. TRAMADOL HCL [Suspect]

REACTIONS (1)
  - STEVENS-JOHNSON SYNDROME [None]
